FAERS Safety Report 4435299-9 (Version None)
Quarter: 2004Q3

REPORT INFORMATION
  Report Type: 
  Country: None (occurrence: None)
  Receive Date: 20040827
  Receipt Date: 20040827
  Transmission Date: 20050211
  Serious: No
  Sender: FDA-Public Use
  Company Number: None

PATIENT
  Age: 31 Year
  Sex: Male

DRUGS (1)
  1. VANCOMYCIN [Suspect]
     Dosage: 1250 MG Q 12 H IV
     Route: 042
     Dates: start: 20040423, end: 20040424

REACTIONS (1)
  - RASH MACULO-PAPULAR [None]
